FAERS Safety Report 9358701 (Version 3)
Quarter: 2013Q4

REPORT INFORMATION
  Report Type: Report from Study
  Country: JP (occurrence: JP)
  Receive Date: 20130620
  Receipt Date: 20131231
  Transmission Date: 20140711
  Serious: Yes (Other)
  Sender: FDA-Public Use
  Company Number: JP-GLAXOSMITHKLINE-B0900584A

PATIENT
  Age: 59 Year
  Sex: Female
  Weight: 46 kg

DRUGS (12)
  1. TYKERB [Suspect]
     Indication: BREAST CANCER
     Route: 048
     Dates: start: 20120827
  2. XELODA [Suspect]
     Indication: BREAST CANCER
     Route: 048
     Dates: start: 20120827
  3. MUCODYNE [Concomitant]
     Indication: COUGH
     Route: 048
     Dates: start: 20120827
  4. MEDICON [Concomitant]
     Indication: COUGH
     Route: 048
     Dates: start: 20120209
  5. OXYCONTIN [Concomitant]
     Indication: COUGH
     Route: 048
     Dates: start: 20120209
  6. LOXONIN [Concomitant]
     Indication: COUGH
     Route: 048
     Dates: start: 20120211
  7. MUCOSTA [Concomitant]
     Indication: COUGH
     Route: 048
     Dates: start: 20120211
  8. PROCHLORPERAZINE MALEATE [Concomitant]
     Indication: COUGH
     Route: 048
     Dates: start: 20120207
  9. MAGMITT [Concomitant]
     Indication: COUGH
     Route: 048
     Dates: start: 20120207
  10. PRIMPERAN [Concomitant]
     Indication: COUGH
     Route: 048
     Dates: start: 20120221
  11. FERROMIA [Concomitant]
     Indication: ANAEMIA
     Route: 048
  12. ZOMETA [Concomitant]
     Indication: METASTASES TO BONE
     Route: 042

REACTIONS (7)
  - Cystitis haemorrhagic [Recovered/Resolved]
  - Anaemia [Recovering/Resolving]
  - Diarrhoea [Recovered/Resolved]
  - Decubitus ulcer [Not Recovered/Not Resolved]
  - Conjunctivitis [Unknown]
  - Cough [Unknown]
  - Productive cough [Unknown]
